FAERS Safety Report 4861874-3 (Version None)
Quarter: 2005Q4

REPORT INFORMATION
  Report Type: 
  Country: None (occurrence: None)
  Receive Date: 20051130
  Receipt Date: 20050714
  Transmission Date: 20060501
  Serious: Yes (Disabling)
  Sender: FDA-Public Use
  Company Number: 200511294BWH

PATIENT
  Age: 46 Year
  Sex: Female

DRUGS (2)
  1. CIPRO [Suspect]
     Indication: PYELONEPHRITIS
     Dosage: BID, ORAL
     Route: 048
     Dates: start: 20050625
  2. PERCOCET [Concomitant]

REACTIONS (2)
  - ARTHRALGIA [None]
  - MUSCLE SPASMS [None]
